FAERS Safety Report 17983905 (Version 1)
Quarter: 2020Q3

REPORT INFORMATION
  Report Type: Spontaneous
  Country: GB (occurrence: GB)
  Receive Date: 20200706
  Receipt Date: 20200706
  Transmission Date: 20201103
  Serious: Yes (Other)
  Sender: FDA-Public Use
  Company Number: GB-TEVA-2020-GB-1795656

PATIENT
  Age: 61 Year
  Sex: Female

DRUGS (10)
  1. BENZYLPENICILLIN SODIUM [Concomitant]
     Active Substance: PENICILLIN G SODIUM
  2. AMOXICILLIN. [Suspect]
     Active Substance: AMOXICILLIN
     Indication: ENDOCARDITIS
     Dosage: 2G
     Route: 042
     Dates: start: 20200603
  3. TEICOPLANIN [Suspect]
     Active Substance: TEICOPLANIN
     Indication: ENDOCARDITIS
     Dosage: 800MG
     Route: 042
     Dates: start: 20200528, end: 20200604
  4. ADALIMUMAB [Concomitant]
     Active Substance: ADALIMUMAB
  5. CELECOXIB. [Suspect]
     Active Substance: CELECOXIB
     Indication: RHEUMATOID ARTHRITIS
     Dosage: 100MG
     Route: 048
     Dates: end: 20200612
  6. CITALOPRAM HYDROCHLORIDE [Concomitant]
     Active Substance: CITALOPRAM HYDROCHLORIDE
  7. RAMIPRIL. [Concomitant]
     Active Substance: RAMIPRIL
  8. GENTAMICIN. [Concomitant]
     Active Substance: GENTAMICIN
  9. CODEINE [Concomitant]
     Active Substance: CODEINE
  10. PARACETAMOL [Concomitant]
     Active Substance: ACETAMINOPHEN

REACTIONS (1)
  - Neutropenia [Not Recovered/Not Resolved]

NARRATIVE: CASE EVENT DATE: 20200601
